FAERS Safety Report 8908460 (Version 1)
Quarter: 2012Q4

REPORT INFORMATION
  Report Type: 
  Country: US (occurrence: US)
  Receive Date: 20121114
  Receipt Date: 20121114
  Transmission Date: 20130627
  Serious: Yes (Hospitalization, Other)
  Sender: FDA-Public Use
  Company Number: US-COVIDIEN/TYCO HEALTHCARE/MALLINCKRODT-T201203890

PATIENT
  Age: 67 Year
  Sex: Male

DRUGS (1)
  1. HYDROCODONE/ACETAMINOPHEN [Suspect]
     Dosage: 10/325 mg, 6 to 8 times a day

REACTIONS (16)
  - Drug dependence [Unknown]
  - Feeling abnormal [Unknown]
  - Balance disorder [Unknown]
  - Disturbance in attention [Unknown]
  - Loss of consciousness [Unknown]
  - Depression [Unknown]
  - Anxiety [Unknown]
  - Hyperhidrosis [Unknown]
  - Palpitations [Unknown]
  - Arthralgia [Unknown]
  - Fatigue [Unknown]
  - Crying [Unknown]
  - Night sweats [Unknown]
  - Tremor [Unknown]
  - Dizziness [Unknown]
  - Nausea [Unknown]
